FAERS Safety Report 13128260 (Version 1)
Quarter: 2017Q1

REPORT INFORMATION
  Report Type: Report from Study
  Country: None (occurrence: FR)
  Receive Date: 20170118
  Receipt Date: 20170118
  Transmission Date: 20170428
  Serious: Yes (Other)
  Sender: FDA-Public Use
  Company Number: FR-ABBVIE-17P-056-1834603-00

PATIENT
  Age: 56 Year
  Sex: Male

DRUGS (4)
  1. HUMIRA [Suspect]
     Active Substance: ADALIMUMAB
     Indication: CROHN^S DISEASE
     Route: 058
     Dates: start: 20161107, end: 20161222
  2. PENTASA [Concomitant]
     Active Substance: MESALAMINE
     Indication: PRODUCT USED FOR UNKNOWN INDICATION
  3. FUMAFER [Concomitant]
     Active Substance: FERROUS FUMARATE
     Indication: PRODUCT USED FOR UNKNOWN INDICATION
  4. CORTANCYL [Concomitant]
     Active Substance: PREDNISONE
     Indication: PRODUCT USED FOR UNKNOWN INDICATION
     Dosage: 20 MG DAILY OR MORE

REACTIONS (11)
  - Subileus [Unknown]
  - Weight decreased [Unknown]
  - Nausea [Unknown]
  - Insomnia [Unknown]
  - Peripheral swelling [Unknown]
  - Dyspnoea [Unknown]
  - Dysphagia [Unknown]
  - Vomiting [Unknown]
  - Productive cough [Unknown]
  - Oedema peripheral [Unknown]
  - Hypophagia [Unknown]

NARRATIVE: CASE EVENT DATE: 20161208
